FAERS Safety Report 7593911-X (Version None)
Quarter: 2011Q3

REPORT INFORMATION
  Report Type: 
  Country: None (occurrence: None)
  Receive Date: 20110706
  Receipt Date: 20110629
  Transmission Date: 20111222
  Serious: Yes (Other)
  Sender: FDA-Public Use
  Company Number: PHHY2011BR33356

PATIENT
  Sex: Female

DRUGS (3)
  1. FORMOTEROL FUMARATE [Suspect]
     Dosage: UNK
     Dates: start: 20101001
  2. FORMOTEROL FUMARATE [Suspect]
     Dosage: UNK
     Dates: start: 20100901
  3. FORMOTEROL FUMARATE [Suspect]
     Dosage: 2 CAPSULES (TREATMENT 1 + 2) AT NIGHT
     Dates: start: 20100809

REACTIONS (4)
  - DYSPNOEA [None]
  - UPPER RESPIRATORY TRACT INFLAMMATION [None]
  - FATIGUE [None]
  - BACK PAIN [None]
